FAERS Safety Report 17018302 (Version 4)
Quarter: 2019Q4

REPORT INFORMATION
  Report Type: Report from Study
  Country: US (occurrence: US)
  Receive Date: 20191111
  Receipt Date: 20191209
  Transmission Date: 20200122
  Serious: No
  Sender: FDA-Public Use
  Company Number: NVSC2019US026280

PATIENT
  Age: 42 Year
  Sex: Male

DRUGS (1)
  1. GILENYA [Suspect]
     Active Substance: FINGOLIMOD HYDROCHLORIDE
     Indication: MULTIPLE SCLEROSIS
     Dosage: 0.5 MG, QD
     Route: 048
     Dates: start: 20191029

REACTIONS (7)
  - Somnolence [Recovered/Resolved]
  - Gastrooesophageal reflux disease [Unknown]
  - Urinary incontinence [Recovering/Resolving]
  - Speech disorder [Unknown]
  - Laryngitis [Unknown]
  - Micturition urgency [Recovering/Resolving]
  - Aphonia [Unknown]

NARRATIVE: CASE EVENT DATE: 20191029
